FAERS Safety Report 7887116-2 (Version None)
Quarter: 2011Q4

REPORT INFORMATION
  Report Type: 
  Country: None (occurrence: None)
  Receive Date: 20111102
  Receipt Date: 20110715
  Transmission Date: 20120403
  Serious: No
  Sender: FDA-Public Use
  Company Number: US-AMGEN-USASP2011036021

PATIENT
  Sex: Female

DRUGS (1)
  1. ENBREL [Suspect]
     Indication: MENIERE'S DISEASE
     Dosage: 50 MG, QWK
     Dates: start: 20110601

REACTIONS (2)
  - INCREASED TENDENCY TO BRUISE [None]
  - URTICARIA [None]
